FAERS Safety Report 14287968 (Version 8)
Quarter: 2018Q2

REPORT INFORMATION
  Report Type: Spontaneous
  Country: US (occurrence: US)
  Receive Date: 20171214
  Receipt Date: 20180516
  Transmission Date: 20180711
  Serious: Yes (Congenital Anomaly, Other)
  Sender: FDA-Public Use
  Company Number: PHEH2017US039579

PATIENT
  Sex: Male

DRUGS (3)
  1. ONDANSETRON [Suspect]
     Active Substance: ONDANSETRON
     Indication: FOETAL EXPOSURE DURING PREGNANCY
     Dosage: MOTHER DOSE: 4 MG, PRN
     Route: 064
  2. ZOFRAN [Suspect]
     Active Substance: ONDANSETRON HYDROCHLORIDE
     Indication: FOETAL EXPOSURE DURING PREGNANCY
     Route: 064
  3. ZOFRAN ODT [Suspect]
     Active Substance: ONDANSETRON HYDROCHLORIDE
     Indication: FOETAL EXPOSURE DURING PREGNANCY
     Dosage: MOTHER^S DOSE: 1 DF, TID, PRN
     Route: 064

REACTIONS (29)
  - Left-to-right cardiac shunt [Unknown]
  - Foetal exposure during pregnancy [Unknown]
  - Diarrhoea [Unknown]
  - Atrial septal defect [Unknown]
  - Dysphagia [Unknown]
  - Gastroenteritis [Unknown]
  - Oropharyngeal pain [Unknown]
  - Pulmonary arterial pressure increased [Unknown]
  - Cardiac murmur [Unknown]
  - Pyrexia [Unknown]
  - Anaemia [Unknown]
  - Patent ductus arteriosus [Unknown]
  - Pulmonary valve incompetence [Unknown]
  - Right ventricular hypertrophy [Unknown]
  - Cough [Unknown]
  - Rash [Unknown]
  - Gastritis [Unknown]
  - Fallot^s tetralogy [Unknown]
  - Stomatitis [Unknown]
  - Viral infection [Unknown]
  - Heart disease congenital [Unknown]
  - Laevocardia [Unknown]
  - Phimosis [Unknown]
  - Neonatal respiratory distress [Unknown]
  - Injury [Unknown]
  - Viral rash [Unknown]
  - Ventricular septal defect [Unknown]
  - Pulmonary artery stenosis [Unknown]
  - Nasal congestion [Unknown]
